FAERS Safety Report 6927998-1 (Version None)
Quarter: 2010Q3

REPORT INFORMATION
  Report Type: 
  Country: None (occurrence: None)
  Receive Date: 20100817
  Receipt Date: 20100806
  Transmission Date: 20110219
  Serious: Yes (Other)
  Sender: FDA-Public Use
  Company Number: CA-JNJFOC-20100802648

PATIENT
  Sex: Female
  Weight: 75 kg

DRUGS (5)
  1. REMICADE [Suspect]
     Indication: COLITIS ULCERATIVE
     Route: 042
  2. METHOTREXATE [Concomitant]
     Route: 048
  3. CALCIUM [Concomitant]
  4. VITAMIN D [Concomitant]
  5. VITAMIN E (TOCOPHERYL ACETATE) [Concomitant]

REACTIONS (1)
  - CARPAL TUNNEL SYNDROME [None]
